FAERS Safety Report 25290923 (Version 1)
Quarter: 2025Q2

REPORT INFORMATION
  Report Type: Spontaneous
  Country: US (occurrence: US)
  Receive Date: 20250510
  Receipt Date: 20250510
  Transmission Date: 20250716
  Serious: No
  Sender: SANOFI AVENTIS
  Company Number: US-SA-2025SA121719

PATIENT

DRUGS (2)
  1. TZIELD [Suspect]
     Active Substance: TEPLIZUMAB-MZWV
  2. TZIELD [Suspect]
     Active Substance: TEPLIZUMAB-MZWV

REACTIONS (1)
  - Rash [Unknown]
